FAERS Safety Report 18066400 (Version 5)
Quarter: 2021Q1

REPORT INFORMATION
  Report Type: Report from Study
  Country: US (occurrence: US)
  Receive Date: 20200724
  Receipt Date: 20210112
  Transmission Date: 20210419
  Serious: Yes (Other)
  Sender: FDA-Public Use
  Company Number: US-PFIZER INC-2020282290

PATIENT
  Age: 56 Year
  Sex: Male

DRUGS (2)
  1. SUTENT [Suspect]
     Active Substance: SUNITINIB MALATE
     Dosage: 37.5 MG ONCE DAILY, 4 WEEKS ON AND 2 WEEKS OFF
     Route: 048
     Dates: start: 20200817
  2. SUTENT [Suspect]
     Active Substance: SUNITINIB MALATE
     Indication: RENAL CELL CARCINOMA
     Dosage: 50 MG, ONCE A DAY FOR 4 WEEKS ON AND 2 WEEKS OFF
     Route: 048
     Dates: start: 20200609, end: 202007

REACTIONS (21)
  - Fatigue [Recovering/Resolving]
  - Dizziness [Recovering/Resolving]
  - Memory impairment [Unknown]
  - Glossodynia [Recovering/Resolving]
  - Goitre [Unknown]
  - Product dose omission issue [Unknown]
  - Blood creatine increased [Recovering/Resolving]
  - Blood pressure increased [Unknown]
  - Tongue dry [Recovering/Resolving]
  - Stomatitis [Unknown]
  - Fungal infection [Recovering/Resolving]
  - Condition aggravated [Recovering/Resolving]
  - Dry skin [Recovering/Resolving]
  - Headache [Recovering/Resolving]
  - Hair colour changes [Unknown]
  - Yellow skin [Recovering/Resolving]
  - Skin fissures [Recovering/Resolving]
  - Glossitis [Unknown]
  - Dehydration [Unknown]
  - Heart rate decreased [Unknown]
  - Thyroid hormones increased [Unknown]

NARRATIVE: CASE EVENT DATE: 2020
